FAERS Safety Report 16183362 (Version 1)
Quarter: 2019Q2

REPORT INFORMATION
  Report Type: Spontaneous
  Country: US (occurrence: US)
  Receive Date: 20190411
  Receipt Date: 20190411
  Transmission Date: 20190711
  Serious: Yes (Other)
  Sender: FDA-Public Use
  Company Number: US-EMCURE PHARMACEUTICALS LTD-2019-EPL-0165

PATIENT
  Age: 17 Year
  Sex: Male

DRUGS (3)
  1. NADOLOL. [Suspect]
     Active Substance: NADOLOL
     Dosage: 60 MILLIGRAM BID, 1 MG/KG/DAY
  2. NADOLOL. [Suspect]
     Active Substance: NADOLOL
     Indication: VENTRICULAR TACHYCARDIA
     Dosage: 30 MILLIGRAM, BID, 0.5 MG/KG/DAY
  3. FLECAINIDE [Concomitant]
     Active Substance: FLECAINIDE
     Indication: VENTRICULAR TACHYCARDIA
     Dosage: 150 MILLIGRAM, BID, 2.5 MG/KG/DAY

REACTIONS (4)
  - Drug ineffective [Unknown]
  - Sinus bradycardia [Unknown]
  - Hypotension [Unknown]
  - Dizziness [Unknown]
